FAERS Safety Report 9194611 (Version 1)
Quarter: 2013Q1

REPORT INFORMATION
  Report Type: Spontaneous
  Country: US (occurrence: US)
  Receive Date: 20130328
  Receipt Date: 20130328
  Transmission Date: 20140127
  Serious: No
  Sender: FDA-Public Use
  Company Number: US-ALLERGAN-1210223US

PATIENT
  Sex: Female

DRUGS (4)
  1. LATISSE 0.03% [Suspect]
     Indication: GROWTH OF EYELASHES
     Dosage: 2 GTT, QHS
     Route: 061
     Dates: start: 201203, end: 201204
  2. BLOOD PRESSURE MEDICINE [Concomitant]
     Indication: HYPERTENSION
     Dosage: 1 N/A, QD
     Route: 048
  3. UNSPECIFIED INGREDIENT [Concomitant]
     Indication: HYPOTHYROIDISM
     Dosage: 1 N/A, QD
     Route: 048
  4. DIABETES MEDICINE [Concomitant]
     Indication: TYPE 2 DIABETES MELLITUS
     Dosage: 1 N/A, QD
     Route: 048

REACTIONS (1)
  - Drug ineffective [Unknown]
